FAERS Safety Report 10732494 (Version 1)
Quarter: 2015Q1

REPORT INFORMATION
  Report Type: Spontaneous
  Country: DK (occurrence: DK)
  Receive Date: 20150123
  Receipt Date: 20150123
  Transmission Date: 20150721
  Serious: Yes (Hospitalization, Other)
  Sender: FDA-Public Use
  Company Number: DK-MALLINCKRODT-T201500813

PATIENT
  Age: 66 Year
  Sex: Male
  Weight: 116 kg

DRUGS (1)
  1. OPTIRAY 350 [Suspect]
     Active Substance: IOVERSOL
     Indication: UROGRAM
     Dosage: 145 ML, SINGLE
     Route: 042
     Dates: start: 20150113, end: 20150113

REACTIONS (3)
  - Eye oedema [Unknown]
  - Eye pruritus [Unknown]
  - Contrast media reaction [Unknown]

NARRATIVE: CASE EVENT DATE: 20150113
